FAERS Safety Report 8966373 (Version 1)
Quarter: 2012Q4

REPORT INFORMATION
  Report Type: 
  Country: US (occurrence: US)
  Receive Date: 20121214
  Receipt Date: 20121214
  Transmission Date: 20130627
  Serious: Yes (Disabling)
  Sender: FDA-Public Use
  Company Number: US-GLAXOSMITHKLINE-A1004388A

PATIENT
  Age: 48 Year
  Sex: Female

DRUGS (12)
  1. LAMICTAL [Suspect]
     Indication: BIPOLAR DISORDER
     Route: 048
     Dates: start: 2004
  2. SEASONIQUE [Suspect]
     Indication: MENOPAUSAL SYMPTOMS
     Route: 065
     Dates: start: 2010
  3. PROMETRIUM [Suspect]
     Indication: MENOPAUSAL SYMPTOMS
     Dosage: 300MG Unknown
     Route: 065
     Dates: start: 20110205
  4. PROZAC [Concomitant]
  5. BUSPAR [Concomitant]
  6. IRON [Concomitant]
  7. VIT. C [Concomitant]
  8. MULTIVITAMIN [Concomitant]
  9. VITAMINE D3 [Concomitant]
  10. HYDROCHLOROTHIAZIDE [Concomitant]
  11. LEVOXYL [Concomitant]
  12. ACIPHEX [Concomitant]

REACTIONS (7)
  - Bipolar disorder [Not Recovered/Not Resolved]
  - Depression [Unknown]
  - Weight decreased [Unknown]
  - Asthenia [Unknown]
  - Drug ineffective [Unknown]
  - Incorrect dose administered [Unknown]
  - Drug interaction [Unknown]
